FAERS Safety Report 4680806-4 (Version None)
Quarter: 2005Q2

REPORT INFORMATION
  Report Type: 
  Country: None (occurrence: None)
  Receive Date: 20050601
  Receipt Date: 20050525
  Transmission Date: 20051028
  Serious: Yes (Hospitalization)
  Sender: FDA-Public Use
  Company Number: TCI2005A02550

PATIENT
  Age: 8 Decade
  Sex: Male

DRUGS (2)
  1. ACTOS [Suspect]
     Indication: DIABETES MELLITUS
     Dosage: 15 MG (15 MG, 1 D)
     Route: 048
     Dates: start: 20030501, end: 20050501
  2. NORVASC [Suspect]
     Dates: end: 20050501

REACTIONS (2)
  - DYSPNOEA [None]
  - PLEURAL EFFUSION [None]
